FAERS Safety Report 22654684 (Version 1)
Quarter: 2023Q2

REPORT INFORMATION
  Report Type: Spontaneous
  Country: US (occurrence: US)
  Receive Date: 20230629
  Receipt Date: 20230629
  Transmission Date: 20230722
  Serious: Yes (Other)
  Sender: FDA-Public Use
  Company Number: US-NOVOPROD-1083912

PATIENT

DRUGS (1)
  1. LIRAGLUTIDE [Suspect]
     Active Substance: LIRAGLUTIDE
     Indication: Obesity
     Dosage: UNK
     Route: 058

REACTIONS (3)
  - Eye haemorrhage [Not Recovered/Not Resolved]
  - Diabetic eye disease [Not Recovered/Not Resolved]
  - Condition aggravated [Not Recovered/Not Resolved]
